FAERS Safety Report 6859409-9 (Version None)
Quarter: 2010Q3

REPORT INFORMATION
  Report Type: 
  Country: None (occurrence: None)
  Receive Date: 20100719
  Receipt Date: 20080209
  Transmission Date: 20110219
  Serious: No
  Sender: FDA-Public Use
  Company Number: US-PFIZER INC-2008020931

PATIENT

DRUGS (1)
  1. CHANTIX [Suspect]
     Dates: start: 20080203

REACTIONS (7)
  - CONFUSIONAL STATE [None]
  - DECREASED APPETITE [None]
  - FATIGUE [None]
  - INSOMNIA [None]
  - NERVOUSNESS [None]
  - UNEVALUABLE EVENT [None]
  - VISION BLURRED [None]
